FAERS Safety Report 23305417 (Version 2)
Quarter: 2024Q1

REPORT INFORMATION
  Report Type: Spontaneous
  Country: US (occurrence: None)
  Receive Date: 20231218
  Receipt Date: 20240118
  Transmission Date: 20240409
  Serious: No
  Sender: FDA-Public Use
  Company Number: 2023A275351

PATIENT
  Sex: Male

DRUGS (1)
  1. CALQUENCE [Suspect]
     Active Substance: ACALABRUTINIB
     Dosage: UNKNOWN
     Route: 048

REACTIONS (3)
  - Haemorrhage subcutaneous [Unknown]
  - Contusion [Unknown]
  - Product dose omission issue [Unknown]
